FAERS Safety Report 5080605-8 (Version None)
Quarter: 2006Q3

REPORT INFORMATION
  Report Type: 
  Country: None (occurrence: None)
  Receive Date: 20060815
  Receipt Date: 20060728
  Transmission Date: 20061208
  Serious: Yes (Other)
  Sender: FDA-Public Use
  Company Number: JP-JPN-A200602869

PATIENT
  Age: 60 Year
  Sex: Female

DRUGS (11)
  1. FLUTIDE DISKUS [Suspect]
     Indication: DRUG USE FOR UNKNOWN INDICATION
     Dosage: 200MCG PER DAY
     Route: 055
  2. THEOLONG [Concomitant]
     Route: 048
  3. RISEDRONATE SODIUM [Concomitant]
     Route: 048
  4. OSTELUC [Concomitant]
     Route: 048
  5. SINGULAIR [Concomitant]
     Route: 048
  6. NORVASC [Concomitant]
     Route: 048
  7. MEVALOTIN [Concomitant]
     Route: 048
  8. SELBEX [Concomitant]
     Route: 048
  9. GASTER [Concomitant]
     Route: 048
  10. BENZALIN [Concomitant]
     Route: 048
  11. ALOSENN [Concomitant]
     Route: 048

REACTIONS (2)
  - HYPOKALAEMIA [None]
  - OVERDOSE [None]
